FAERS Safety Report 18941478 (Version 3)
Quarter: 2021Q2

REPORT INFORMATION
  Report Type: Spontaneous
  Country: DE (occurrence: DE)
  Receive Date: 20210225
  Receipt Date: 20210621
  Transmission Date: 20210717
  Serious: Yes (Hospitalization)
  Sender: FDA-Public Use
  Company Number: DE-VERTEX PHARMACEUTICALS-2021-002761

PATIENT
  Age: 34 Year
  Sex: Female
  Weight: 53 kg

DRUGS (26)
  1. KALYDECO [Interacting]
     Active Substance: IVACAFTOR
     Indication: CYSTIC FIBROSIS
     Dosage: 1 TABLET IN THE EVENING
     Route: 048
     Dates: start: 20200929
  2. KALYDECO [Interacting]
     Active Substance: IVACAFTOR
     Dosage: 2 DOSAGE FORM, EVERY THREE DAYS
     Route: 048
  3. FLUTICASONE PROPIONATE. [Concomitant]
     Active Substance: FLUTICASONE PROPIONATE
  4. KALYDECO [Interacting]
     Active Substance: IVACAFTOR
     Dosage: 150 MG, TID
     Route: 048
     Dates: start: 20201210, end: 202012
  5. CREON [Concomitant]
     Active Substance: PANCRELIPASE AMYLASE\PANCRELIPASE LIPASE\PANCRELIPASE PROTEASE
  6. INSULIN [Concomitant]
     Active Substance: INSULIN NOS
  7. NOVORAPID [Concomitant]
     Active Substance: INSULIN ASPART
     Dosage: UNK
  8. KAFTRIO [Suspect]
     Active Substance: ELEXACAFTOR\IVACAFTOR\TEZACAFTOR
     Indication: CYSTIC FIBROSIS
     Dosage: 2 TABLETS IN THE MORNING
     Route: 048
     Dates: start: 20200929
  9. KAFTRIO [Interacting]
     Active Substance: ELEXACAFTOR\IVACAFTOR\TEZACAFTOR
     Dosage: 2 DOSAGE FORM, BID
     Route: 048
     Dates: start: 202012, end: 202012
  10. COTRIM FORTE [Interacting]
     Active Substance: SULFAMETHOXAZOLE\TRIMETHOPRIM
     Indication: C-REACTIVE PROTEIN INCREASED
     Dosage: 2 DOSAGE FORM
     Route: 048
     Dates: start: 20201007, end: 20201011
  11. FERRO SANOL [Concomitant]
     Active Substance: FERROUS GLYCINE SULFATE
     Dosage: 1 DOSAGE FORM
  12. KAFTRIO [Interacting]
     Active Substance: ELEXACAFTOR\IVACAFTOR\TEZACAFTOR
     Dosage: 2 DOSAGE FORM, EVERY THREE DAYS
     Route: 048
  13. COTRIM FORTE [Interacting]
     Active Substance: SULFAMETHOXAZOLE\TRIMETHOPRIM
     Indication: CYSTIC FIBROSIS
  14. KALYDECO [Interacting]
     Active Substance: IVACAFTOR
     Dosage: 150 MG, BID
     Route: 048
  15. KAFTRIO [Interacting]
     Active Substance: ELEXACAFTOR\IVACAFTOR\TEZACAFTOR
     Dosage: 2 DOSAGE FORM, TID
     Route: 048
     Dates: start: 20201210, end: 202012
  16. KALYDECO [Interacting]
     Active Substance: IVACAFTOR
     Dosage: 150 MILLIGRAM, QD
     Route: 048
     Dates: start: 202012
  17. PANTOPRAZOLE [Suspect]
     Active Substance: PANTOPRAZOLE
     Indication: PRODUCT USED FOR UNKNOWN INDICATION
     Route: 065
  18. ONDANSETRON [Concomitant]
     Active Substance: ONDANSETRON
  19. BERODUAL [Concomitant]
     Active Substance: FENOTEROL HYDROBROMIDE\IPRATROPIUM BROMIDE
  20. ACETYLCYSTEINE. [Concomitant]
     Active Substance: ACETYLCYSTEINE
  21. KAFTRIO [Interacting]
     Active Substance: ELEXACAFTOR\IVACAFTOR\TEZACAFTOR
     Dosage: 2 DOSAGE FORM, QD
     Route: 048
     Dates: start: 202012
  22. BOSWELLIA SACRA [Concomitant]
     Dosage: UNK
     Dates: start: 201902
  23. SODIUM CHLORIDE. [Concomitant]
     Active Substance: SODIUM CHLORIDE
     Dosage: 1 DOSAGE FORM
  24. URSODEOXYCHOLIC ACID [Concomitant]
     Active Substance: URSODIOL
  25. VIANI [Concomitant]
     Active Substance: FLUTICASONE PROPIONATE\SALMETEROL XINAFOATE
     Dosage: 1 DOSAGE FORM
  26. TRIMETHOPRIM. [Concomitant]
     Active Substance: TRIMETHOPRIM
     Dosage: 2 DOSAGE FORM
     Route: 048
     Dates: start: 20201007, end: 202010

REACTIONS (11)
  - Heart rate increased [Recovered/Resolved]
  - Secretion discharge [Recovered/Resolved]
  - Bronchial secretion retention [Recovered/Resolved]
  - Sputum increased [Recovered/Resolved]
  - Respiratory tract haemorrhage [Recovered/Resolved]
  - Condition aggravated [Unknown]
  - Blood glucose decreased [Recovering/Resolving]
  - Accidental overdose [Unknown]
  - Frequent bowel movements [Recovering/Resolving]
  - Drug interaction [Unknown]
  - Oxygen saturation decreased [Recovered/Resolved]

NARRATIVE: CASE EVENT DATE: 202010
